FAERS Safety Report 9281841 (Version 1)
Quarter: 2013Q2

REPORT INFORMATION
  Report Type: Spontaneous
  Country: DE (occurrence: DE)
  Receive Date: 20130510
  Receipt Date: 20130510
  Transmission Date: 20140414
  Serious: Yes (Other)
  Sender: FDA-Public Use
  Company Number: DE-RANBAXY-2013RR-68583

PATIENT
  Age: 32 Year
  Sex: Female
  Weight: 86 kg

DRUGS (6)
  1. IBUPROFEN [Suspect]
     Indication: ANKYLOSING SPONDYLITIS
     Dosage: 300 MG/DAY/ PRECONCEPTIONAL 1200 MG/DAY
     Route: 048
     Dates: start: 20120301, end: 20120925
  2. DAIVOBET [Concomitant]
     Indication: PSORIASIS
     Dosage: SMALL-AREA, 0 - 10 GESTATIONAL WEEK
     Route: 003
     Dates: start: 20120201
  3. FOLIO FORTE [Concomitant]
     Indication: PROPHYLAXIS OF NEURAL TUBE DEFECT
     Dosage: 0.8 MG/DAY (BIS 0.4), 0 - 27 GESTATIONAL WEEK, ALSO PRECONCEPTIONAL
     Route: 048
     Dates: start: 20120201
  4. KADEFUNGIN 3 [Concomitant]
     Indication: VULVOVAGINAL MYCOTIC INFECTION
     Dosage: 20 MG/DAY, 10 - 12 GESTATIONAL WEEK
     Route: 067
  5. MIFEGYNE [Concomitant]
     Indication: ABORTION INDUCED
     Dosage: UNK
     Route: 048
     Dates: start: 20120925, end: 20120925
  6. CYTOTEC [Concomitant]
     Indication: ABORTION INDUCED
     Dosage: UNK
     Route: 067
     Dates: start: 20120925, end: 20120925

REACTIONS (2)
  - Oligohydramnios [Not Recovered/Not Resolved]
  - Placental insufficiency [Not Recovered/Not Resolved]
